FAERS Safety Report 24248926 (Version 1)
Quarter: 2024Q3

REPORT INFORMATION
  Report Type: Spontaneous
  Country: US (occurrence: None)
  Receive Date: 20240823
  Receipt Date: 20240823
  Transmission Date: 20241016
  Serious: Yes (Hospitalization)
  Sender: Public
  Company Number: None

PATIENT
  Sex: Female

DRUGS (1)
  1. ICATIBANT ACETATE [Suspect]
     Active Substance: ICATIBANT ACETATE
     Indication: Complement factor abnormal
     Dosage: 30MG AS NEEDED SQ
     Route: 058
     Dates: start: 202406

REACTIONS (5)
  - Lip disorder [None]
  - Tongue disorder [None]
  - Pharyngeal disorder [None]
  - Eye disorder [None]
  - Chest pain [None]
